FAERS Safety Report 14196332 (Version 2)
Quarter: 2017Q4

REPORT INFORMATION
  Report Type: Report from Study
  Country: US (occurrence: US)
  Receive Date: 20171116
  Receipt Date: 20171121
  Transmission Date: 20180321
  Serious: Yes (Other)
  Sender: FDA-Public Use
  Company Number: US-JNJFOC-20171103694

PATIENT
  Age: 36 Year
  Sex: Male

DRUGS (17)
  1. CYCLOSPORINE. [Concomitant]
     Active Substance: CYCLOSPORINE
  2. NEURONTIN [Concomitant]
     Active Substance: GABAPENTIN
     Dosage: 900 MG, TID, SOMETIMES 600 INSTED
     Route: 048
  3. BUDESONIDE. [Concomitant]
     Active Substance: BUDESONIDE
     Dosage: 180 MCG, BID, TWO PUFFS
  4. ACYCLOVIR. [Concomitant]
     Active Substance: ACYCLOVIR
     Dosage: 400 MG, QHS, SINCE TRANSPLANT
     Route: 065
  5. IMBRUVICA [Suspect]
     Active Substance: IBRUTINIB
     Indication: CHRONIC GRAFT VERSUS HOST DISEASE
     Route: 048
     Dates: start: 20171018, end: 20171107
  6. TACROLIMUS. [Concomitant]
     Active Substance: TACROLIMUS
  7. CYCLOBENZAPRINE. [Concomitant]
     Active Substance: CYCLOBENZAPRINE
  8. DIAZEPAM. [Concomitant]
     Active Substance: DIAZEPAM
  9. MUCOMYST [Concomitant]
     Active Substance: ACETYLCYSTEINE
     Dosage: QD, BOTH EYES
  10. MONTELUKAST SODIUM. [Concomitant]
     Active Substance: MONTELUKAST SODIUM
     Dosage: 10 MG, QHS
     Route: 048
  11. MEGESTROL ACETATE. [Concomitant]
     Active Substance: MEGESTROL ACETATE
     Dosage: 40 MG/ML -10 ML, BID
     Route: 048
  12. NYSTATIN. [Concomitant]
     Active Substance: NYSTATIN
     Dosage: 100,000 U/ML 1ML 4 TIMES /DAY
  13. CITALOPRAM [Concomitant]
     Active Substance: CITALOPRAM HYDROBROMIDE
  14. ZOLPIDEM [Concomitant]
     Active Substance: ZOLPIDEM\ZOLPIDEM TARTRATE
  15. IMBRUVICA [Suspect]
     Active Substance: IBRUTINIB
     Indication: CHRONIC GRAFT VERSUS HOST DISEASE
     Route: 048
     Dates: start: 20171019, end: 2017
  16. AZITHROMYCIN ANHYDROUS. [Concomitant]
     Active Substance: AZITHROMYCIN ANHYDROUS
     Indication: LUNG DISORDER
     Dosage: 250 MG, THREE TIMES PER WEEK
     Route: 048
  17. HYDROCODONE/HOMATROPINE [Concomitant]
     Active Substance: HOMATROPINE METHYLBROMIDE\HYDROCODONE BITARTRATE

REACTIONS (10)
  - Facial bones fracture [Unknown]
  - Fall [Unknown]
  - Drug dose omission [Unknown]
  - Wheezing [Unknown]
  - Lip injury [Unknown]
  - Cough [Unknown]
  - Memory impairment [Unknown]
  - Face injury [Unknown]
  - Nausea [Recovered/Resolved]
  - Dyspnoea [Unknown]

NARRATIVE: CASE EVENT DATE: 201710
